FAERS Safety Report 4390621-7 (Version None)
Quarter: 2004Q2

REPORT INFORMATION
  Report Type: 
  Country: None (occurrence: None)
  Receive Date: 20040630
  Receipt Date: 20040615
  Transmission Date: 20050107
  Serious: Yes (Other)
  Sender: FDA-Public Use
  Company Number: US-SHR-04-021605

PATIENT
  Age: 22 Year
  Sex: Female
  Weight: 68.9 kg

DRUGS (1)
  1. MIRENA [Suspect]
     Indication: CONTRACEPTION
     Dosage: 20 UG/DAY, CONT, INTRA-UTERINE
     Route: 015
     Dates: start: 20030613, end: 20040116

REACTIONS (32)
  - ABDOMINAL PAIN [None]
  - ABDOMINAL TENDERNESS [None]
  - AMENORRHOEA [None]
  - BACK PAIN [None]
  - BIOPSY ENDOMETRIUM ABNORMAL [None]
  - BLOOD FOLLICLE STIMULATING HORMONE ABNORMAL [None]
  - BLOOD LUTEINISING HORMONE ABNORMAL [None]
  - BREAST PAIN [None]
  - CONDITION AGGRAVATED [None]
  - CYSTITIS INTERSTITIAL [None]
  - DYSFUNCTIONAL UTERINE BLEEDING [None]
  - DYSMENORRHOEA [None]
  - DYSPAREUNIA [None]
  - ECTROPION OF CERVIX [None]
  - ENDOMETRIOSIS [None]
  - ENDOMETRITIS [None]
  - ESCHERICHIA URINARY TRACT INFECTION [None]
  - HOT FLUSH [None]
  - INFERTILITY FEMALE [None]
  - MENSTRUATION IRREGULAR [None]
  - NAUSEA [None]
  - NIGHT SWEATS [None]
  - OVARIAN CYST [None]
  - PELVIC INFLAMMATORY DISEASE [None]
  - PERITONITIS [None]
  - POST PROCEDURAL PAIN [None]
  - PYREXIA [None]
  - UTERINE INFLAMMATION [None]
  - UTERINE SPASM [None]
  - VAGINAL HAEMORRHAGE [None]
  - VAGINITIS BACTERIAL [None]
  - VULVOVAGINITIS [None]
